FAERS Safety Report 14859999 (Version 1)
Quarter: 2018Q2

REPORT INFORMATION
  Report Type: Spontaneous
  Country: US (occurrence: US)
  Receive Date: 20180508
  Receipt Date: 20180508
  Transmission Date: 20180711
  Serious: No
  Sender: FDA-Public Use
  Company Number: US-ALLERGAN-1727111US

PATIENT
  Age: 18 Year
  Sex: Female

DRUGS (2)
  1. NORETHINDRONE;ETHINYLESTRADIOL;FERROUS FUMARATE UNK [Suspect]
     Active Substance: ETHINYL ESTRADIOL\NORETHINDRONE
     Dosage: UNK
     Route: 048
     Dates: start: 20170611
  2. NORETHINDRONE;ETHINYLESTRADIOL;FERROUS FUMARATE UNK [Suspect]
     Active Substance: ETHINYL ESTRADIOL\NORETHINDRONE
     Indication: CONTRACEPTION
     Dosage: UNK
     Route: 048
     Dates: end: 20170610

REACTIONS (3)
  - Swollen tongue [Unknown]
  - Somnolence [Unknown]
  - Oral mucosal blistering [Unknown]

NARRATIVE: CASE EVENT DATE: 20170611
